FAERS Safety Report 12752096 (Version 1)
Quarter: 2016Q3

REPORT INFORMATION
  Report Type: Spontaneous
  Country: US (occurrence: US)
  Receive Date: 20160915
  Receipt Date: 20160915
  Transmission Date: 20161109
  Serious: No
  Sender: FDA-Public Use
  Company Number: US-ASTRAZENECA-2016SE96025

PATIENT
  Age: 23263 Day
  Sex: Male
  Weight: 72.6 kg

DRUGS (11)
  1. ATORVASTATIN [Concomitant]
     Active Substance: ATORVASTATIN
  2. INSULIN [Concomitant]
     Active Substance: INSULIN NOS
     Indication: DIABETES MELLITUS
  3. OXYCONTIN [Concomitant]
     Active Substance: OXYCODONE HYDROCHLORIDE
     Indication: BACK PAIN
  4. TAMULOSIN [Concomitant]
     Active Substance: TAMSULOSIN
  5. PRAXAIR [Concomitant]
  6. OXYCODONE [Concomitant]
     Active Substance: OXYCODONE
     Indication: BACK PAIN
  7. FINASTERIDE. [Concomitant]
     Active Substance: FINASTERIDE
  8. LISINOPRIL. [Suspect]
     Active Substance: LISINOPRIL
     Indication: HYPERTENSION
     Route: 048
  9. TIZANIDINE. [Concomitant]
     Active Substance: TIZANIDINE
     Indication: MUSCLE RELAXANT THERAPY
  10. SYMBICORT [Suspect]
     Active Substance: BUDESONIDE\FORMOTEROL FUMARATE DIHYDRATE
     Indication: ASTHMA
     Dosage: 160/4.5 MCG, TWO PUFFS TWICE A DAY OR TWO PUFFS ONCE A DAY
     Route: 055
     Dates: start: 2010
  11. SYMBICORT [Suspect]
     Active Substance: BUDESONIDE\FORMOTEROL FUMARATE DIHYDRATE
     Indication: ASTHMA
     Dosage: 160/4.5 MCG, TAKING A COUPLE PUFFS CALLER USES OCCASIONALLY
     Route: 055
     Dates: start: 2010

REACTIONS (14)
  - Back pain [Unknown]
  - Muscle disorder [Unknown]
  - Erectile dysfunction [Unknown]
  - Back injury [Unknown]
  - Intentional product use issue [Unknown]
  - Prostatomegaly [Unknown]
  - Constipation [Unknown]
  - Expired product administered [Unknown]
  - Bladder disorder [Unknown]
  - Intentional product misuse [Unknown]
  - Blood cholesterol increased [Unknown]
  - Dizziness [Unknown]
  - Hypertension [Unknown]
  - Malaise [Unknown]

NARRATIVE: CASE EVENT DATE: 20160907
